FAERS Safety Report 7010344-5 (Version None)
Quarter: 2010Q3

REPORT INFORMATION
  Report Type: 
  Country: None (occurrence: None)
  Receive Date: 20100923
  Receipt Date: 20100914
  Transmission Date: 20110219
  Serious: Yes (Other)
  Sender: FDA-Public Use
  Company Number: Z0005573A

PATIENT
  Sex: Female
  Weight: 82 kg

DRUGS (2)
  1. OFATUMUMAB [Suspect]
     Indication: RHEUMATOID ARTHRITIS
     Route: 042
     Dates: start: 20081002, end: 20081016
  2. OFATUMUMAB [Suspect]
     Route: 042
     Dates: start: 20090331, end: 20100420

REACTIONS (1)
  - MYASTHENIA GRAVIS [None]
